FAERS Safety Report 8519368-X (Version None)
Quarter: 2012Q3

REPORT INFORMATION
  Report Type: 
  Country: None (occurrence: None)
  Receive Date: 20120718
  Receipt Date: 20120709
  Transmission Date: 20120928
  Serious: Yes (Other)
  Sender: FDA-Public Use
  Company Number: JP-FRI-1000037172

PATIENT
  Age: 50 Year
  Sex: Female
  Weight: 46 kg

DRUGS (14)
  1. DOGMATYL [Concomitant]
     Dosage: 100 MG
     Route: 048
     Dates: start: 20120523, end: 20120610
  2. DOGMATYL [Concomitant]
     Dosage: 150 MG
     Route: 048
     Dates: start: 20120411, end: 20120502
  3. ZOLPIDEM [Concomitant]
     Dosage: 10 MG
     Route: 048
     Dates: start: 20111102
  4. LEXAPRO [Suspect]
     Indication: DEPRESSION
     Dosage: 10 MG
     Route: 048
     Dates: start: 20120517, end: 20120614
  5. LEXAPRO [Suspect]
     Dosage: 5 MG
     Route: 048
     Dates: start: 20120615, end: 20120619
  6. ZOLOFT [Concomitant]
     Dosage: 50 MG
     Route: 048
     Dates: start: 20120517, end: 20120529
  7. ZOLOFT [Concomitant]
     Dosage: 25 MG
     Route: 048
     Dates: start: 20120530, end: 20120605
  8. PALGIN [Concomitant]
     Dosage: 0.5 MG
     Route: 048
     Dates: start: 20111102
  9. FLUNITRAZEPAM [Concomitant]
     Dosage: 2 MG
     Route: 048
     Dates: start: 20111102
  10. ZOLOFT [Concomitant]
     Dosage: 75 MG
     Route: 048
     Dates: start: 20111108, end: 20111115
  11. DOGMATYL [Concomitant]
     Dosage: 50 MG
     Route: 048
     Dates: start: 20120616
  12. ZOLOFT [Concomitant]
     Dosage: 50 MG
     Route: 048
     Dates: start: 20111102, end: 20111107
  13. DOGMATYL [Concomitant]
     Dosage: 75 MG
     Route: 048
     Dates: start: 20120611, end: 20120615
  14. ZOLOFT [Concomitant]
     Dosage: 100 MG
     Route: 048
     Dates: start: 20111116, end: 20120516

REACTIONS (1)
  - CONVULSION [None]
